FAERS Safety Report 18342423 (Version 1)
Quarter: 2020Q4

REPORT INFORMATION
  Report Type: Spontaneous
  Country: BR (occurrence: BR)
  Receive Date: 20201005
  Receipt Date: 20201005
  Transmission Date: 20210113
  Serious: Yes (Other)
  Sender: FDA-Public Use
  Company Number: BR-SUN PHARMACEUTICAL INDUSTRIES LTD-2020R1-262713

PATIENT
  Sex: Female

DRUGS (1)
  1. DUAC [Suspect]
     Active Substance: BENZOYL PEROXIDE\CLINDAMYCIN PHOSPHATE
     Indication: ACNE
     Dosage: UNK
     Route: 065
     Dates: start: 20200908

REACTIONS (7)
  - Erythema [Unknown]
  - Oedema [Unknown]
  - Wound [Unknown]
  - Pruritus [Unknown]
  - Skin disorder [Unknown]
  - Drug hypersensitivity [Unknown]
  - Swelling [Unknown]
